FAERS Safety Report 19608840 (Version 1)
Quarter: 2021Q3

REPORT INFORMATION
  Report Type: Spontaneous
  Country: US (occurrence: US)
  Receive Date: 20210723
  Receipt Date: 20210723
  Transmission Date: 20211014
  Serious: Yes (Hospitalization)
  Sender: FDA-Public Use
  Company Number: None

PATIENT
  Age: 61 Year
  Sex: Female
  Weight: 86.1 kg

DRUGS (28)
  1. BISACODYL. [Concomitant]
     Active Substance: BISACODYL
  2. CYCLOBENZAPRINE. [Concomitant]
     Active Substance: CYCLOBENZAPRINE
  3. FUROSEMIDE. [Concomitant]
     Active Substance: FUROSEMIDE
  4. PREGABLIN [Concomitant]
     Active Substance: PREGABALIN
  5. ASPIRIN. [Concomitant]
     Active Substance: ASPIRIN
  6. BELSOMRA [Concomitant]
     Active Substance: SUVOREXANT
  7. DULOXETINE. [Concomitant]
     Active Substance: DULOXETINE
  8. GUIFENASIN [Concomitant]
  9. ONDANSETRON [Concomitant]
     Active Substance: ONDANSETRON
  10. TRULICITY [Concomitant]
     Active Substance: DULAGLUTIDE
  11. URSODIOL. [Concomitant]
     Active Substance: URSODIOL
  12. ATORVASTATIN [Concomitant]
     Active Substance: ATORVASTATIN
  13. CETIRIZINE [Concomitant]
     Active Substance: CETIRIZINE HYDROCHLORIDE
  14. HYDROXYCHLOROQUINE [Concomitant]
     Active Substance: HYDROXYCHLOROQUINE
  15. LORAZEPAM. [Concomitant]
     Active Substance: LORAZEPAM
  16. NITROSTAT [Concomitant]
     Active Substance: NITROGLYCERIN
  17. UBRELVY [Concomitant]
     Active Substance: UBROGEPANT
  18. ALBUTEROL. [Concomitant]
     Active Substance: ALBUTEROL
  19. CRANBERRY EXTRACT [Concomitant]
     Active Substance: CRANBERRY
  20. FAMOTIDINE. [Concomitant]
     Active Substance: FAMOTIDINE
  21. BIOTIN [Concomitant]
     Active Substance: BIOTIN
  22. DOXYCYCLINE. [Concomitant]
     Active Substance: DOXYCYCLINE
  23. HUMALOG [Concomitant]
     Active Substance: INSULIN LISPRO
  24. TOPROL XL [Concomitant]
     Active Substance: METOPROLOL SUCCINATE
  25. NORCO [Concomitant]
     Active Substance: ACETAMINOPHEN\HYDROCODONE BITARTRATE
  26. SPRYCEL [Suspect]
     Active Substance: DASATINIB
     Indication: CHRONIC MYELOID LEUKAEMIA
     Route: 048
     Dates: start: 20210603
  27. FLUOXETINE [Concomitant]
     Active Substance: FLUOXETINE HYDROCHLORIDE
  28. POTASSIUM CHLORIDE. [Concomitant]
     Active Substance: POTASSIUM CHLORIDE

REACTIONS (2)
  - Chest pain [None]
  - Headache [None]
